FAERS Safety Report 8757943 (Version 1)
Quarter: 2012Q4

REPORT INFORMATION
  Report Type: 
  Country: GR (occurrence: GR)
  Receive Date: 20120828
  Receipt Date: 20120828
  Transmission Date: 20130627
  Serious: Yes (Other)
  Sender: FDA-Public Use
  Company Number: GR-PFIZER INC-2012209351

PATIENT
  Sex: Female

DRUGS (2)
  1. CHAMPIX [Suspect]
     Indication: SMOKING CESSATION THERAPY
     Dosage: UNK
     Dates: start: 2012
  2. CHAMPIX [Suspect]
     Dosage: 1 mg, every 2-3 days

REACTIONS (3)
  - Major depression [Unknown]
  - Asthenia [Unknown]
  - Decreased appetite [Unknown]
